FAERS Safety Report 6102390-0 (Version None)
Quarter: 2009Q1

REPORT INFORMATION
  Report Type: 
  Country: None (occurrence: None)
  Receive Date: 20090304
  Receipt Date: 20090219
  Transmission Date: 20090719
  Serious: Yes (Death)
  Sender: FDA-Public Use
  Company Number: ES-ROCHE-612107

PATIENT
  Sex: Male
  Weight: 57.8 kg

DRUGS (2)
  1. XELODA [Suspect]
     Dosage: DOSE: 825 MG/M2 EACH 12 HOURS FOR 14 DAYS
     Route: 048
     Dates: start: 20090113, end: 20090125
  2. OXALIPLATIN [Concomitant]
     Indication: COLON CANCER
     Route: 042
     Dates: start: 20090113

REACTIONS (1)
  - MUCOSAL INFLAMMATION [None]
